FAERS Safety Report 8618982-0 (Version None)
Quarter: 2012Q3

REPORT INFORMATION
  Report Type: 
  Country: None (occurrence: None)
  Receive Date: 20120824
  Receipt Date: 20120817
  Transmission Date: 20120928
  Serious: Yes (Other)
  Sender: FDA-Public Use
  Company Number: PHHY2012BR072041

PATIENT
  Sex: Female

DRUGS (1)
  1. AMLODOPINE BESYLATE AND VALSARTAN [Suspect]
     Indication: HYPERTENSION
     Dosage: UNK UKN, QD

REACTIONS (5)
  - NEOPLASM MALIGNANT [None]
  - MALAISE [None]
  - TERMINAL STATE [None]
  - DYSURIA [None]
  - ABASIA [None]
